FAERS Safety Report 14597812 (Version 13)
Quarter: 2021Q2

REPORT INFORMATION
  Report Type: Spontaneous
  Country: US (occurrence: US)
  Receive Date: 20180305
  Receipt Date: 20210604
  Transmission Date: 20210716
  Serious: No
  Sender: FDA-Public Use
  Company Number: US-PFIZER INC-2016519954

PATIENT
  Age: 62 Year
  Sex: Male

DRUGS (12)
  1. LYRICA [Suspect]
     Active Substance: PREGABALIN
     Dosage: 150 MG, TWICE A DAY
     Route: 048
     Dates: start: 20170327, end: 2017
  2. LYRICA [Suspect]
     Active Substance: PREGABALIN
     Dosage: 150 MG, TWICE A DAY
     Route: 048
     Dates: start: 20171109
  3. ASPIRIN 81 [Concomitant]
     Active Substance: ASPIRIN
     Dosage: 81 MG, DAILY
     Route: 048
  4. LYRICA [Suspect]
     Active Substance: PREGABALIN
     Dosage: 150 MG, TWICE A DAY
     Route: 048
     Dates: start: 20170531, end: 2017
  5. LYRICA [Suspect]
     Active Substance: PREGABALIN
     Dosage: 150 MG, TWICE A DAY
     Route: 048
     Dates: start: 20190515, end: 2019
  6. LYRICA [Suspect]
     Active Substance: PREGABALIN
     Dosage: 150 MG, TWICE A DAY
     Route: 048
     Dates: start: 20190702
  7. DESYREL [Concomitant]
     Active Substance: TRAZODONE HYDROCHLORIDE
     Dosage: 50 MG, ONCE A DAY NIGHTLY
     Route: 048
     Dates: start: 20170525
  8. PRINZIDE [Concomitant]
     Active Substance: HYDROCHLOROTHIAZIDE\LISINOPRIL
     Dosage: 1 DF, DAILY (HYDROCHLOROTHIAZIDE?20 MG/LISINOPRIL DIHYDRATE?12.5 MG)
     Route: 048
     Dates: start: 20161102, end: 20171102
  9. ZOCOR [Concomitant]
     Active Substance: SIMVASTATIN
     Dosage: 20 MG, ONCE A DAY (NIGHTLY)
     Route: 048
     Dates: start: 20161102, end: 20171102
  10. LYRICA [Suspect]
     Active Substance: PREGABALIN
     Indication: NEUROPATHY PERIPHERAL
     Dosage: 150 MG, TWICE A DAY
     Route: 048
     Dates: start: 20161102
  11. VITAMIN C [Concomitant]
     Active Substance: ASCORBIC ACID
     Dosage: 1000 MG, DAILY
     Route: 048
  12. NORCO [Concomitant]
     Active Substance: ACETAMINOPHEN\HYDROCODONE BITARTRATE
     Dosage: 1 DF, THRICE A DAY (HYDROCODONE BITARTRATE?10 MG/PARACETAMOL?325 MG)
     Route: 048
     Dates: start: 20170628

REACTIONS (5)
  - Thinking abnormal [Unknown]
  - Malaise [Unknown]
  - Confusional state [Unknown]
  - Cognitive disorder [Unknown]
  - Hypoacusis [Not Recovered/Not Resolved]
